FAERS Safety Report 25721767 (Version 1)
Quarter: 2025Q3

REPORT INFORMATION
  Report Type: Spontaneous
  Country: CN (occurrence: CN)
  Receive Date: 20250825
  Receipt Date: 20250825
  Transmission Date: 20251021
  Serious: Yes (Other)
  Sender: MYLAN
  Company Number: CN-MYLANLABS-2025M1071325

PATIENT
  Age: 36 Year
  Sex: Female
  Weight: 45 kg

DRUGS (4)
  1. CELEBREX [Suspect]
     Active Substance: CELECOXIB
     Indication: Intervertebral disc protrusion
     Dosage: 0.2 GRAM, BID
     Dates: start: 20250725, end: 20250725
  2. CELEBREX [Suspect]
     Active Substance: CELECOXIB
     Dosage: 0.2 GRAM, BID
     Route: 048
     Dates: start: 20250725, end: 20250725
  3. CELEBREX [Suspect]
     Active Substance: CELECOXIB
     Dosage: 0.2 GRAM, BID
     Route: 048
     Dates: start: 20250725, end: 20250725
  4. CELEBREX [Suspect]
     Active Substance: CELECOXIB
     Dosage: 0.2 GRAM, BID
     Dates: start: 20250725, end: 20250725

REACTIONS (3)
  - Laryngospasm [Recovering/Resolving]
  - Dyspnoea [Recovering/Resolving]
  - Pruritus [Recovering/Resolving]

NARRATIVE: CASE EVENT DATE: 20250725
